FAERS Safety Report 4460551-0 (Version None)
Quarter: 2004Q3

REPORT INFORMATION
  Report Type: 
  Country: None (occurrence: None)
  Receive Date: 20040928
  Receipt Date: 20040818
  Transmission Date: 20050211
  Serious: No
  Sender: FDA-Public Use
  Company Number: US-GLAXOSMITHKLINE-A0522666A

PATIENT
  Sex: Male

DRUGS (3)
  1. ADVAIR DISKUS 100/50 [Suspect]
     Indication: ASTHMA
     Route: 055
  2. ALBUTEROL [Concomitant]
  3. ALLERGY MEDICATION [Concomitant]
     Route: 048

REACTIONS (3)
  - DIARRHOEA [None]
  - HEADACHE [None]
  - VOMITING [None]
